FAERS Safety Report 4955583-X (Version None)
Quarter: 2006Q1

REPORT INFORMATION
  Report Type: 
  Country: None (occurrence: None)
  Receive Date: 20060328
  Receipt Date: 20051207
  Transmission Date: 20060701
  Serious: Yes (Hospitalization)
  Sender: FDA-Public Use
  Company Number: US-MERCK-0512USA01036

PATIENT
  Age: 64 Year
  Sex: Male

DRUGS (7)
  1. VIOXX [Suspect]
     Indication: ARTHRALGIA
     Route: 048
     Dates: start: 20010906, end: 20040508
  2. VIOXX [Suspect]
     Indication: PROSTATE CANCER
     Route: 048
     Dates: start: 20010906, end: 20040508
  3. DOXAZOSIN MESYLATE [Concomitant]
     Route: 065
  4. CARDIZEM LA [Concomitant]
     Route: 065
  5. [THERAPY UNSPECIFIED] [Concomitant]
     Route: 065
  6. [THERAPY UNSPECIFIED] [Concomitant]
     Route: 065
  7. RIMANTADINE HYDROCHLORIDE [Concomitant]
     Route: 065

REACTIONS (2)
  - BLOOD PRESSURE INCREASED [None]
  - MYOCARDIAL INFARCTION [None]
